FAERS Safety Report 23442494 (Version 4)
Quarter: 2024Q3

REPORT INFORMATION
  Report Type: Report from Study
  Country: EG (occurrence: EG)
  Receive Date: 20240125
  Receipt Date: 20240906
  Transmission Date: 20241016
  Serious: Yes (Life-Threatening, Hospitalization, Other)
  Sender: NOVARTIS
  Company Number: EG-002147023-NVSC2024EG015760

PATIENT
  Age: 77 Year
  Sex: Female

DRUGS (8)
  1. ENTRESTO [Suspect]
     Active Substance: SACUBITRIL\VALSARTAN
     Indication: Heart failure with reduced ejection fraction
     Dosage: 1 DOSAGE FORM, QD
     Route: 048
     Dates: start: 20231113
  2. ENTRESTO [Suspect]
     Active Substance: SACUBITRIL\VALSARTAN
     Dosage: 50 MG, BID
     Route: 048
     Dates: start: 20231113
  3. PLAVIX [Concomitant]
     Active Substance: CLOPIDOGREL BISULFATE
     Indication: Anticoagulant therapy
     Dosage: 75 MG, QD
     Route: 065
     Dates: start: 20240110
  4. ELIQUIS [Concomitant]
     Active Substance: APIXABAN
     Indication: Anticoagulant therapy
     Dosage: 5 MG, QD
     Route: 065
     Dates: start: 20240105
  5. ALDACTONE [Concomitant]
     Active Substance: SPIRONOLACTONE
     Indication: Cardiac disorder
     Dosage: 1 DOSAGE FORM, QD
     Route: 065
     Dates: start: 20240105
  6. CRESTOR [Concomitant]
     Active Substance: ROSUVASTATIN CALCIUM
     Indication: Lipids abnormal
     Dosage: 10 MG, QD (ONE TAB ONCE DAILY)
     Route: 065
     Dates: start: 20240110
  7. LANOXIN [Concomitant]
     Active Substance: DIGOXIN
     Indication: Product used for unknown indication
     Dosage: 0.25 MG, QD (ONE TAB ONCE DAIL)
     Route: 065
     Dates: start: 20240110
  8. FORADIL [Concomitant]
     Active Substance: FORMOTEROL FUMARATE
     Indication: Product used for unknown indication
     Dosage: UNK, QD (ONCE DAILY)
     Route: 055
     Dates: start: 20240110

REACTIONS (10)
  - Pulmonary oedema [Recovering/Resolving]
  - Dyspnoea [Recovering/Resolving]
  - Concomitant disease aggravated [Recovering/Resolving]
  - Hyperthyroidism [Unknown]
  - Hypokalaemia [Recovering/Resolving]
  - Injection site discolouration [Not Recovered/Not Resolved]
  - Faeces discoloured [Not Recovered/Not Resolved]
  - Hypomagnesaemia [Recovering/Resolving]
  - Ejection fraction decreased [Unknown]
  - Fatigue [Unknown]

NARRATIVE: CASE EVENT DATE: 20231120
